FAERS Safety Report 4622038-1 (Version None)
Quarter: 2005Q1

REPORT INFORMATION
  Report Type: 
  Country: None (occurrence: None)
  Receive Date: 20050329
  Receipt Date: 20040614
  Transmission Date: 20050727
  Serious: Yes (Other)
  Sender: FDA-Public Use
  Company Number: 9814

PATIENT
  Age: 46 Year
  Sex: Female

DRUGS (2)
  1. METHOTREXATE [Suspect]
  2. ETANERCEPT [Suspect]
     Dosage: 25 MG 2/WK UNK
     Route: 065
     Dates: start: 20030101, end: 20030401

REACTIONS (1)
  - COLON CANCER [None]
